FAERS Safety Report 13775700 (Version 1)
Quarter: 2017Q3

REPORT INFORMATION
  Report Type: Spontaneous
  Country: US (occurrence: US)
  Receive Date: 20170720
  Receipt Date: 20170720
  Transmission Date: 20171127
  Serious: No
  Sender: FDA-Public Use
  Company Number: US-BAUSCH-BL-2017-015818

PATIENT
  Age: 57 Year
  Sex: Female

DRUGS (6)
  1. DUREZOL [Concomitant]
     Active Substance: DIFLUPREDNATE
     Route: 047
     Dates: start: 20170317, end: 201703
  2. ILEVRO [Concomitant]
     Active Substance: NEPAFENAC
     Indication: POSTOPERATIVE CARE
     Dosage: 1 DROP IN BOTH EYES TWICE DAILY FOR 2 WEEKS AFTER CATARACT SURGERY
     Route: 047
     Dates: start: 20170310, end: 201703
  3. BESIVANCE [Suspect]
     Active Substance: BESIFLOXACIN
     Indication: PREOPERATIVE CARE
     Dosage: IN BOTH EYES
     Route: 047
     Dates: start: 20170309, end: 201703
  4. BESIVANCE [Suspect]
     Active Substance: BESIFLOXACIN
     Indication: POSTOPERATIVE CARE
     Dosage: IN BOTH EYES
     Route: 047
     Dates: start: 201703, end: 201703
  5. DUREZOL [Concomitant]
     Active Substance: DIFLUPREDNATE
     Indication: POSTOPERATIVE CARE
     Dosage: 1 DROP IN BOTH EYES TWICE DAILY FOR A WEEK THEN 1 TIME A DAY FOR ANOTHER WEEK
     Route: 047
     Dates: start: 20170310, end: 201703
  6. TIMOLOL MALEATE. [Concomitant]
     Active Substance: TIMOLOL MALEATE
     Indication: POSTOPERATIVE CARE
     Dosage: 1 DROP IN BOTH EYES TWICE A DAY FOR 1 WEEK.
     Route: 047
     Dates: start: 20170310, end: 201703

REACTIONS (4)
  - Foreign body in eye [Recovered/Resolved]
  - Product use in unapproved indication [Unknown]
  - Product physical consistency issue [Unknown]
  - Product container issue [Unknown]

NARRATIVE: CASE EVENT DATE: 201703
